FAERS Safety Report 9869490 (Version 1)
Quarter: 2014Q1

REPORT INFORMATION
  Report Type: Spontaneous
  Country: BR (occurrence: None)
  Receive Date: 20140131
  Receipt Date: 20140131
  Transmission Date: 20141002
  Serious: Yes (Hospitalization)
  Sender: FDA-Public Use
  Company Number: 152498

PATIENT
  Age: 27 Year
  Sex: Female

DRUGS (3)
  1. LEUCOVORIN CALCIUM FOR INJ. 50MG - BEDFORD LABS, INC. [Suspect]
     Indication: COLORECTAL ADENOCARCINOMA
  2. LEUCOVORIN CALCIUM FOR INJ. 50MG - BEDFORD LABS, INC. [Suspect]
     Indication: PULMONARY EMBOLISM
  3. OXALIPLATIN/5-FLUOROURACIL [Concomitant]

REACTIONS (6)
  - Posterior reversible encephalopathy syndrome [None]
  - Abdominal pain [None]
  - Vomiting [None]
  - Convulsion [None]
  - Confusional state [None]
  - Depressed level of consciousness [None]
